FAERS Safety Report 15402401 (Version 1)
Quarter: 2018Q3

REPORT INFORMATION
  Report Type: Spontaneous
  Country: ZA (occurrence: ZA)
  Receive Date: 20180919
  Receipt Date: 20180919
  Transmission Date: 20181010
  Serious: Yes (Other)
  Sender: FDA-Public Use
  Company Number: ZA-PFIZER INC-2018359516

PATIENT
  Age: 57 Year
  Sex: Female

DRUGS (3)
  1. ASPAVOR [Suspect]
     Active Substance: ATORVASTATIN
     Indication: BLOOD CHOLESTEROL ABNORMAL
     Dosage: 10 MG, AT NIGHT
  2. ELTROXIN [Suspect]
     Active Substance: LEVOTHYROXINE
     Dosage: 50 UG, UNK
  3. GLUCOPHAGE [Suspect]
     Active Substance: METFORMIN HYDROCHLORIDE
     Indication: DIABETES MELLITUS
     Dosage: 1000 MG,

REACTIONS (1)
  - Gastric ulcer [Unknown]

NARRATIVE: CASE EVENT DATE: 20180904
